FAERS Safety Report 13292709 (Version 2)
Quarter: 2017Q1

REPORT INFORMATION
  Report Type: Report from Study
  Country: FR (occurrence: FR)
  Receive Date: 20170303
  Receipt Date: 20170331
  Transmission Date: 20170428
  Serious: Yes (Hospitalization)
  Sender: FDA-Public Use
  Company Number: PHHO2017FR003957

PATIENT
  Age: 71 Year
  Sex: Female
  Weight: 51 kg

DRUGS (6)
  1. LEVOTHYROX [Concomitant]
     Active Substance: LEVOTHYROXINE
     Indication: THYROIDECTOMY
     Dosage: 125 UG, UNK
     Route: 065
  2. TAREG [Concomitant]
     Active Substance: VALSARTAN
     Indication: PROPHYLAXIS
     Dosage: 80 MG, UNK
     Route: 048
  3. METFORMIN [Concomitant]
     Active Substance: METFORMIN HYDROCHLORIDE
     Indication: DIABETES MELLITUS
     Dosage: 500 MG, UNK
     Route: 048
  4. NOVONORM [Concomitant]
     Active Substance: REPAGLINIDE
     Indication: DIABETES MELLITUS
     Dosage: 1 MG, AT EACH MEAL
     Route: 048
     Dates: end: 20141020
  5. PAZOPANIB [Suspect]
     Active Substance: PAZOPANIB
     Indication: THYROID CANCER
     Dosage: 800 MG, QD
     Route: 048
     Dates: start: 20141021, end: 20141027
  6. PAZOPANIB [Suspect]
     Active Substance: PAZOPANIB
     Dosage: 400 MG, QD
     Route: 048
     Dates: start: 20141104

REACTIONS (3)
  - Fatigue [Recovered/Resolved]
  - Decreased appetite [Recovered/Resolved]
  - Pyrexia [Recovered/Resolved]

NARRATIVE: CASE EVENT DATE: 20141025
